FAERS Safety Report 5262538-7 (Version None)
Quarter: 2007Q1

REPORT INFORMATION
  Report Type: 
  Country: None (occurrence: None)
  Receive Date: 20070312
  Receipt Date: 20070301
  Transmission Date: 20070707
  Serious: Yes (Other)
  Sender: FDA-Public Use
  Company Number: JP-BRISTOL-MYERS SQUIBB COMPANY-13663216

PATIENT
  Age: 13 Year
  Sex: Female

DRUGS (5)
  1. IFOMIDE [Suspect]
     Indication: SMALL CELL CARCINOMA
     Route: 041
     Dates: start: 20070115, end: 20070115
  2. IFOMIDE [Suspect]
     Indication: NASAL CAVITY CANCER
     Route: 041
     Dates: start: 20070115, end: 20070115
  3. UROMITEXAN [Concomitant]
     Indication: CYSTITIS HAEMORRHAGIC
     Route: 042
     Dates: start: 20070115, end: 20070115
  4. KYTRIL [Concomitant]
     Indication: NAUSEA
     Route: 041
     Dates: start: 20070115, end: 20070119
  5. ALLOPURINOL [Concomitant]
     Indication: HYPERURICAEMIA
     Dates: start: 20070114, end: 20070118

REACTIONS (4)
  - CONVULSION [None]
  - CYANOSIS [None]
  - METASTASES TO CENTRAL NERVOUS SYSTEM [None]
  - TONIC CONVULSION [None]
